FAERS Safety Report 6332714-0 (Version None)
Quarter: 2009Q3

REPORT INFORMATION
  Report Type: 
  Country: None (occurrence: None)
  Receive Date: 20090828
  Receipt Date: 20090824
  Transmission Date: 20100115
  Serious: Yes (Disabling, Other)
  Sender: FDA-Public Use
  Company Number: US-BAYER-200913297BCC

PATIENT
  Age: 77 Year
  Sex: Female

DRUGS (5)
  1. ASPIRIN [Suspect]
     Indication: STENT PLACEMENT
     Dosage: TOTAL DAILY DOSE: 81 MG  UNIT DOSE: 81 MG
     Route: 048
     Dates: start: 20070901, end: 20090701
  2. ASPIRIN [Suspect]
     Dosage: TOTAL DAILY DOSE: 162 MG  UNIT DOSE: 81 MG
     Route: 048
     Dates: start: 20090701
  3. PLAVIX [Suspect]
     Indication: STENT PLACEMENT
     Dosage: TOTAL DAILY DOSE: 75 MG  UNIT DOSE: 75 MG
     Route: 048
     Dates: start: 20070901, end: 20090716
  4. BLOOD PRESSURE MEDICATIONS [Concomitant]
     Indication: HYPERTENSION
     Route: 065
  5. PREDNISONE TAB [Concomitant]
     Indication: STEROID THERAPY
     Route: 065
     Dates: start: 19980101

REACTIONS (3)
  - BLINDNESS UNILATERAL [None]
  - EYE DISORDER [None]
  - RETINAL HAEMORRHAGE [None]
